FAERS Safety Report 5549209-4 (Version None)
Quarter: 2007Q4

REPORT INFORMATION
  Report Type: 
  Country: None (occurrence: None)
  Receive Date: 20071211
  Receipt Date: 20070417
  Transmission Date: 20080405
  Serious: No
  Sender: FDA-Public Use
  Company Number: US-AMGEN-KDL220321

PATIENT
  Sex: Female

DRUGS (2)
  1. ENBREL [Suspect]
     Indication: RHEUMATOID ARTHRITIS
     Route: 058
     Dates: start: 20070403
  2. METHOTREXATE [Concomitant]
     Dates: start: 20070326

REACTIONS (2)
  - INJECTION SITE BRUISING [None]
  - INJECTION SITE REACTION [None]
